FAERS Safety Report 4693015-X (Version None)
Quarter: 2005Q2

REPORT INFORMATION
  Report Type: 
  Country: None (occurrence: None)
  Receive Date: 20050615
  Receipt Date: 20050527
  Transmission Date: 20051028
  Serious: Yes (Death, Hospitalization)
  Sender: FDA-Public Use
  Company Number: US_0412109535

PATIENT
  Age: 37 Year
  Sex: Female

DRUGS (16)
  1. TERIPARATIDE [Suspect]
     Indication: OSTEOPOROSIS
     Dosage: 20 UG/1 DAY
     Dates: start: 20040413, end: 20040101
  2. REMICAR (INFLIXIMAB) [Concomitant]
  3. ACCUPRIL [Concomitant]
  4. TOPROL-XL [Concomitant]
  5. PLAQUENIL [Concomitant]
  6. PROTONIX (PANTOPRAZOLE0 [Concomitant]
  7. METHOTREXATE [Concomitant]
  8. FOSAMAX [Concomitant]
  9. FLEXERIL [Concomitant]
  10. ZOFRAN [Concomitant]
  11. PHENERGAN (PROMETAZINE HYDROCHLORIDE) [Concomitant]
  12. BENTYL [Concomitant]
  13. SYNTHROID [Concomitant]
  14. PAXIL [Concomitant]
  15. OXYCODONE HCL [Concomitant]
  16. MS CONTIN [Concomitant]

REACTIONS (7)
  - BREATH SOUNDS ABSENT [None]
  - CARDIAC ARREST [None]
  - CHOLECYSTECTOMY [None]
  - DIARRHOEA [None]
  - LOSS OF CONSCIOUSNESS [None]
  - NAUSEA [None]
  - VOMITING [None]
